FAERS Safety Report 21255636 (Version 1)
Quarter: 2022Q3

REPORT INFORMATION
  Report Type: Spontaneous
  Country: US (occurrence: US)
  Receive Date: 20220825
  Receipt Date: 20220825
  Transmission Date: 20221026
  Serious: No
  Sender: FDA-Public Use
  Company Number: US-009507513-2207USA002110

PATIENT
  Age: 40 Year
  Sex: Male

DRUGS (1)
  1. KEYTRUDA [Suspect]
     Active Substance: PEMBROLIZUMAB
     Indication: Malignant melanoma
     Dosage: 200 MILLIGRAM, Q3W
     Dates: start: 20220405

REACTIONS (4)
  - SARS-CoV-2 test positive [Unknown]
  - Blood thyroid stimulating hormone increased [Unknown]
  - Thyroxine free abnormal [Unknown]
  - Tri-iodothyronine free abnormal [Unknown]

NARRATIVE: CASE EVENT DATE: 20220621
